FAERS Safety Report 5645833-9 (Version None)
Quarter: 2008Q1

REPORT INFORMATION
  Report Type: 
  Country: None (occurrence: None)
  Receive Date: 20080229
  Receipt Date: 20080228
  Transmission Date: 20080703
  Serious: Yes (Death, Hospitalization, Disabling)
  Sender: FDA-Public Use
  Company Number: US-BAXTER-2008BH001649

PATIENT
  Age: 78 Year
  Sex: Female

DRUGS (2)
  1. HEPARIN SODIUM [Suspect]
     Indication: DEEP VEIN THROMBOSIS
     Dosage: DOSE UNIT:UNKNOWN
     Route: 065
  2. BLOOD PRESSURE MEDICATION [Concomitant]
     Indication: HYPERTENSION
     Route: 065

REACTIONS (6)
  - BEDRIDDEN [None]
  - DEATH [None]
  - HYPERTENSION [None]
  - HYPOTENSION [None]
  - OEDEMA PERIPHERAL [None]
  - VOMITING [None]
